FAERS Safety Report 4523220-4 (Version None)
Quarter: 2004Q4

REPORT INFORMATION
  Report Type: 
  Country: None (occurrence: None)
  Receive Date: 20041209
  Receipt Date: 20041209
  Transmission Date: 20050328
  Serious: Yes (Hospitalization)
  Sender: FDA-Public Use
  Company Number: None

PATIENT
  Age: 52 Year
  Sex: Female
  Weight: 95.2554 kg

DRUGS (3)
  1. VIOXX [Suspect]
     Indication: RHEUMATOID ARTHRITIS
     Dosage: 1 EVERY DAY
     Dates: start: 20020525, end: 20020528
  2. VIOXX [Suspect]
     Indication: RHEUMATOID ARTHRITIS
     Dosage: 1 EVERY DAY
     Dates: start: 20040401, end: 20040416
  3. VIOXX [Suspect]
     Indication: RHEUMATOID ARTHRITIS
     Dosage: 1 EVERY DAY
     Dates: start: 20041015, end: 20041016

REACTIONS (3)
  - CHEST PAIN [None]
  - DYSPNOEA [None]
  - VITAL FUNCTIONS ABNORMAL [None]
